FAERS Safety Report 18624827 (Version 3)
Quarter: 2021Q1

REPORT INFORMATION
  Report Type: Spontaneous
  Country: CA (occurrence: CA)
  Receive Date: 20201216
  Receipt Date: 20210212
  Transmission Date: 20210419
  Serious: Yes (Hospitalization, Other)
  Sender: FDA-Public Use
  Company Number: CA-JNJFOC-20201223146

PATIENT
  Age: 54 Year
  Sex: Female

DRUGS (4)
  1. AIMOVIG [Suspect]
     Active Substance: ERENUMAB-AOOE
     Dosage: PREFILLED AUTO INJECTOR
     Route: 058
  2. TOPAMAX [Suspect]
     Active Substance: TOPIRAMATE
     Indication: MIGRAINE
     Route: 048
  3. AIMOVIG [Suspect]
     Active Substance: ERENUMAB-AOOE
     Indication: MIGRAINE
     Dosage: PREFILLED AUTO INJECTOR
     Route: 065
  4. PROPRANOLOL [Suspect]
     Active Substance: PROPRANOLOL HYDROCHLORIDE
     Indication: MIGRAINE
     Route: 065

REACTIONS (13)
  - Carcinoid tumour pulmonary [Unknown]
  - Nodule [Unknown]
  - Facet joint syndrome [Unknown]
  - Scar [Unknown]
  - Breast cyst [Unknown]
  - Vertebral foraminal stenosis [Unknown]
  - Vertebral osteophyte [Unknown]
  - Chest pain [Unknown]
  - Drug ineffective [Unknown]
  - Dyspnoea [Unknown]
  - Migraine [Unknown]
  - Cardiac disorder [Unknown]
  - Troponin increased [Unknown]
